FAERS Safety Report 7703170-2 (Version None)
Quarter: 2011Q3

REPORT INFORMATION
  Report Type: 
  Country: None (occurrence: None)
  Receive Date: 20110823
  Receipt Date: 20110815
  Transmission Date: 20111222
  Serious: Yes (Hospitalization)
  Sender: FDA-Public Use
  Company Number: BR-US-EMD SERONO, INC.-7076981

PATIENT
  Sex: Female

DRUGS (3)
  1. REBIF [Suspect]
     Dates: start: 20110701
  2. ACETAMINOPHEN [Concomitant]
  3. REBIF [Suspect]
     Indication: MULTIPLE SCLEROSIS

REACTIONS (1)
  - MULTIPLE SCLEROSIS RELAPSE [None]
